FAERS Safety Report 20119384 (Version 2)
Quarter: 2021Q4

REPORT INFORMATION
  Report Type: Spontaneous
  Country: IN (occurrence: IN)
  Receive Date: 20211126
  Receipt Date: 20211209
  Transmission Date: 20220303
  Serious: Yes (Death, Other)
  Sender: FDA-Public Use
  Company Number: IN-PFIZER INC-2021640914

PATIENT
  Age: 78 Year
  Sex: Female
  Weight: 61 kg

DRUGS (2)
  1. PALBOCICLIB [Suspect]
     Active Substance: PALBOCICLIB
     Indication: Breast cancer metastatic
     Dosage: 125 MG, CYCLIC: 1X/DAY 21 DAY COURSE FOLLOWED BY 7 DAYS OF REST
     Route: 048
     Dates: start: 20210208
  2. FULVESTRANT [Concomitant]
     Active Substance: FULVESTRANT

REACTIONS (8)
  - Cardiogenic shock [Fatal]
  - Headache [Unknown]
  - Haemoglobin decreased [Unknown]
  - White blood cell count decreased [Unknown]
  - Eosinophil count increased [Unknown]
  - Monocyte count increased [Unknown]
  - Lymphocyte percentage increased [Unknown]
  - Off label use [Unknown]

NARRATIVE: CASE EVENT DATE: 20210921
